FAERS Safety Report 18951062 (Version 1)
Quarter: 2021Q1

REPORT INFORMATION
  Report Type: Spontaneous
  Country: KR (occurrence: KR)
  Receive Date: 20210228
  Receipt Date: 20210228
  Transmission Date: 20210420
  Serious: No
  Sender: FDA-Public Use
  Company Number: KR-LUPIN PHARMACEUTICALS INC.-2021-02405

PATIENT
  Age: 52 Year
  Sex: Female

DRUGS (8)
  1. CARVEDILOL. [Suspect]
     Active Substance: CARVEDILOL
     Indication: ERYTHEMATOTELANGIECTATIC ROSACEA
     Dosage: 6.25 MILLIGRAM, QD
     Route: 065
  2. METRONIDAZOLE. [Suspect]
     Active Substance: METRONIDAZOLE
     Indication: ERYTHEMATOTELANGIECTATIC ROSACEA
     Dosage: UNK
     Route: 065
  3. TRANEXAMIC ACID. [Suspect]
     Active Substance: TRANEXAMIC ACID
     Indication: ERYTHEMATOTELANGIECTATIC ROSACEA
     Dosage: UNK
     Route: 065
  4. MINOCYCLINE [Suspect]
     Active Substance: MINOCYCLINE HYDROCHLORIDE
     Indication: ERYTHEMATOTELANGIECTATIC ROSACEA
     Dosage: UNK
     Route: 065
  5. METRONIDAZOLE. [Suspect]
     Active Substance: METRONIDAZOLE
     Indication: PAPULOPUSTULAR ROSACEA
  6. CARVEDILOL. [Suspect]
     Active Substance: CARVEDILOL
     Indication: PAPULOPUSTULAR ROSACEA
  7. MINOCYCLINE [Suspect]
     Active Substance: MINOCYCLINE HYDROCHLORIDE
     Indication: PAPULOPUSTULAR ROSACEA
  8. TRANEXAMIC ACID. [Suspect]
     Active Substance: TRANEXAMIC ACID
     Indication: PAPULOPUSTULAR ROSACEA

REACTIONS (2)
  - Drug ineffective [Unknown]
  - Off label use [Unknown]
